FAERS Safety Report 10477468 (Version 3)
Quarter: 2014Q4

REPORT INFORMATION
  Report Type: Spontaneous
  Country: FR (occurrence: FR)
  Receive Date: 20140926
  Receipt Date: 20141014
  Transmission Date: 20150528
  Serious: Yes (Other)
  Sender: FDA-Public Use
  Company Number: FR-AUROBINDO-AUR-APL-2014-10182

PATIENT
  Age: 53 Year
  Sex: Male

DRUGS (2)
  1. TRAMADOL ARROW 200MG [Suspect]
     Active Substance: TRAMADOL
     Indication: TOOTHACHE
     Dosage: 8 DF UPON REQUEST, UNK
     Route: 048
     Dates: start: 20140830, end: 20140831
  2. IMODIUM [Concomitant]
     Active Substance: LOPERAMIDE HYDROCHLORIDE
     Indication: INCONTINENCE
     Dosage: UNK
     Route: 065

REACTIONS (9)
  - Psychomotor skills impaired [Recovered/Resolved]
  - Medication error [Recovered/Resolved]
  - Dysuria [Recovered/Resolved]
  - Drug dispensing error [Recovered/Resolved]
  - Incorrect dose administered [Recovered/Resolved]
  - Somnolence [Recovered/Resolved]
  - Hypertension [Recovered/Resolved]
  - Overdose [Recovered/Resolved]
  - Miosis [Recovered/Resolved]

NARRATIVE: CASE EVENT DATE: 20140830
